FAERS Safety Report 25526250 (Version 1)
Quarter: 2025Q3

REPORT INFORMATION
  Report Type: Spontaneous
  Country: EU (occurrence: EU)
  Receive Date: 20250707
  Receipt Date: 20250707
  Transmission Date: 20251021
  Serious: Yes (Hospitalization, Other)
  Sender: PFIZER
  Company Number: EU-ABBVIE-6299193

PATIENT
  Age: 52 Year
  Sex: Male
  Weight: 79 kg

DRUGS (7)
  1. INFLIXIMAB [Suspect]
     Active Substance: INFLIXIMAB
  2. ADALIMUMAB [Suspect]
     Active Substance: ADALIMUMAB
     Route: 058
  3. RINVOQ [Suspect]
     Active Substance: UPADACITINIB
     Indication: Colitis ulcerative
     Dosage: 45 MG, 1X/DAY,AFTER APPROXIMATELY 15 WEEKS
     Route: 048
     Dates: start: 202408, end: 20250125
  4. VEDOLIZUMAB [Suspect]
     Active Substance: VEDOLIZUMAB
     Dates: start: 202211
  5. TRIAMCINOLONE/ZINC [Concomitant]
  6. USTEKINUMAB [Concomitant]
     Active Substance: USTEKINUMAB
     Dates: start: 20230302
  7. TOFACITINIB [Concomitant]
     Active Substance: TOFACITINIB

REACTIONS (31)
  - Folliculitis [Recovered/Resolved]
  - Infection [Recovered/Resolved]
  - Eczema herpeticum [Recovered/Resolved]
  - Osteochondrosis [Unknown]
  - Haemangioma of liver [Unknown]
  - Oedema [Unknown]
  - Paradoxical drug reaction [Unknown]
  - Pustule [Unknown]
  - Condition aggravated [Unknown]
  - C-reactive protein increased [Unknown]
  - Pyrexia [Unknown]
  - Erythema [Unknown]
  - Acne [Unknown]
  - Ear swelling [Unknown]
  - Scab [Unknown]
  - Eye swelling [Unknown]
  - Skin abrasion [Unknown]
  - Cough [Unknown]
  - Dysuria [Unknown]
  - Nausea [Unknown]
  - Skin lesion [Unknown]
  - Photophobia [Unknown]
  - Phonophobia [Unknown]
  - Headache [Recovering/Resolving]
  - Papule [Unknown]
  - Therapeutic product effect decreased [Unknown]
  - Wound complication [Unknown]
  - Eye discharge [Unknown]
  - Hypertension [Unknown]
  - Blister [Unknown]
  - Flatulence [Unknown]

NARRATIVE: CASE EVENT DATE: 20250120
